FAERS Safety Report 10221420 (Version 1)
Quarter: 2014Q2

REPORT INFORMATION
  Report Type: Spontaneous
  Country: US (occurrence: None)
  Receive Date: 20140605
  Receipt Date: 20140605
  Transmission Date: 20141212
  Serious: Yes (Other)
  Sender: FDA-Public Use
  Company Number: None

PATIENT
  Sex: Female
  Weight: 60.33 kg

DRUGS (9)
  1. VORICONAZOLE 200MG 3MG 3 MO PHIZER/GREENSTONE [Suspect]
     Indication: FUNGAL INFECTION
     Route: 048
     Dates: start: 20131014
  2. ZETIA [Concomitant]
  3. ALDACTONE [Concomitant]
  4. LUNESTA [Concomitant]
  5. ZATIOR (CHOLELEROL) [Concomitant]
  6. ALDACTONE [Concomitant]
  7. LUNESTA [Concomitant]
  8. VIT D3 [Concomitant]
  9. AMBIEN [Concomitant]

REACTIONS (1)
  - Systemic lupus erythematosus rash [None]
